FAERS Safety Report 25493817 (Version 1)
Quarter: 2025Q2

REPORT INFORMATION
  Report Type: Spontaneous
  Country: FR (occurrence: FR)
  Receive Date: 20250630
  Receipt Date: 20250630
  Transmission Date: 20250717
  Serious: Yes (Hospitalization, Other)
  Sender: AUROBINDO
  Company Number: FR-AFSSAPS-GR2025000869

PATIENT
  Age: 82 Year
  Sex: Male
  Weight: 71 kg

DRUGS (1)
  1. ATORVASTATIN [Suspect]
     Active Substance: ATORVASTATIN
     Indication: Atherosclerosis prophylaxis
     Dosage: 40 MILLIGRAM, ONCE A DAY
     Route: 048
     Dates: start: 20250130, end: 20250210

REACTIONS (3)
  - Hepatic cytolysis [Recovered/Resolved]
  - Cholestasis [Recovered/Resolved]
  - Hyperbilirubinaemia [Recovered/Resolved]

NARRATIVE: CASE EVENT DATE: 20250210
